FAERS Safety Report 5201706-7 (Version None)
Quarter: 2006Q4

REPORT INFORMATION
  Report Type: 
  Country: None (occurrence: None)
  Receive Date: 20061012
  Receipt Date: 20060125
  Transmission Date: 20070319
  Serious: Yes (Hospitalization)
  Sender: FDA-Public Use
  Company Number: 13311

PATIENT
  Age: 46 Year
  Sex: Male

DRUGS (7)
  1. METHOTREXATE [Suspect]
     Indication: NON-HODGKIN'S LYMPHOMA
     Dosage: 1 G/M2 ONCE IV
     Route: 042
     Dates: start: 20051108, end: 20051109
  2. METHOTREXATE [Suspect]
  3. CIPRO [Concomitant]
  4. ACYCLOVIR [Concomitant]
  5. FLUCONAZOLE [Concomitant]
  6. ATIVAN [Concomitant]
  7. DECADRON [Concomitant]

REACTIONS (1)
  - RENAL FAILURE [None]
